FAERS Safety Report 8261377 (Version 10)
Quarter: 2013Q1

REPORT INFORMATION
  Report Type: Spontaneous
  Country: BR (occurrence: BR)
  Receive Date: 20111123
  Receipt Date: 20130314
  Transmission Date: 20140127
  Serious: Yes (Hospitalization, Other)
  Sender: FDA-Public Use
  Company Number: BR-ROCHE-1013962

PATIENT
  Age: 31 Year
  Sex: Male
  Weight: 80 kg

DRUGS (4)
  1. XOLAIR [Suspect]
     Indication: ASTHMA
     Route: 058
     Dates: start: 20110701
  2. XOLAIR [Suspect]
     Route: 058
     Dates: start: 20120206
  3. XOLAIR [Suspect]
     Route: 065
     Dates: start: 20120306
  4. FOSTAIR [Concomitant]

REACTIONS (16)
  - Feeling abnormal [Recovered/Resolved]
  - Headache [Recovered/Resolved]
  - Nervous system disorder [Recovered/Resolved]
  - Hypertension [Recovered/Resolved]
  - Tremor [Recovered/Resolved]
  - Oropharyngeal pain [Recovering/Resolving]
  - Injected limb mobility decreased [Recovered/Resolved]
  - Dyspnoea [Recovered/Resolved]
  - Fatigue [Recovered/Resolved]
  - Respiratory tract inflammation [Unknown]
  - Forced expiratory volume decreased [Unknown]
  - Malaise [Recovering/Resolving]
  - Asthma [Unknown]
  - Anxiety [Recovered/Resolved]
  - Nasal congestion [Recovered/Resolved]
  - Weight decreased [Unknown]
